FAERS Safety Report 23092892 (Version 1)
Quarter: 2023Q4

REPORT INFORMATION
  Report Type: Spontaneous
  Country: FR (occurrence: FR)
  Receive Date: 20231021
  Receipt Date: 20231021
  Transmission Date: 20240110
  Serious: Yes (Hospitalization)
  Sender: FDA-Public Use
  Company Number: None

PATIENT
  Age: 69 Year
  Sex: Female
  Weight: 45 kg

DRUGS (12)
  1. CARBOPLATIN [Suspect]
     Active Substance: CARBOPLATIN
     Indication: Lung adenocarcinoma
     Dosage: UNSPECIFIED
     Dates: start: 202302, end: 20230704
  2. PEMBROLIZUMAB [Suspect]
     Active Substance: PEMBROLIZUMAB
     Indication: Lung adenocarcinoma
     Dosage: UNSPECIFIED
     Dates: end: 20230704
  3. HYDROXYZINE [Concomitant]
     Active Substance: HYDROXYZINE HYDROCHLORIDE
     Dosage: STRENGTH: 25 MG, SCORED FILM-COATED TABLET
  4. ONDANSETRON [Concomitant]
     Active Substance: ONDANSETRON
     Dosage: STRENGTH: 8 MG
  5. AMLODIPINE [Concomitant]
     Active Substance: AMLODIPINE BESYLATE
     Dosage: STRENGTH: 5 MG
  6. DOLIPRANE [Concomitant]
     Active Substance: ACETAMINOPHEN
  7. KAYEXALATE [Concomitant]
     Active Substance: SODIUM POLYSTYRENE SULFONATE
  8. ATORVASTATIN [Concomitant]
     Active Substance: ATORVASTATIN
  9. ZOPICLONE [Concomitant]
     Active Substance: ZOPICLONE
     Dosage: STRENGTH: 7.5 MG, SCORED FILM-COATED TABLET
  10. ELIQUIS [Concomitant]
     Active Substance: APIXABAN
     Dosage: STRENGTH:  2.5 MG,
  11. LANSOPRAZOLE [Concomitant]
     Active Substance: LANSOPRAZOLE
  12. SOLUPRED [Concomitant]

REACTIONS (2)
  - Acute kidney injury [Not Recovered/Not Resolved]
  - Tubulointerstitial nephritis [Not Recovered/Not Resolved]

NARRATIVE: CASE EVENT DATE: 20230731
